FAERS Safety Report 21396728 (Version 2)
Quarter: 2022Q4

REPORT INFORMATION
  Report Type: Spontaneous
  Country: JP (occurrence: JP)
  Receive Date: 20220930
  Receipt Date: 20221012
  Transmission Date: 20230112
  Serious: Yes (Hospitalization, Other)
  Sender: FDA-Public Use
  Company Number: A202200678-001

PATIENT
  Sex: Male

DRUGS (10)
  1. BENDAMUSTINE HYDROCHLORIDE [Suspect]
     Active Substance: BENDAMUSTINE HYDROCHLORIDE
     Indication: Follicular lymphoma
     Dosage: UNK, (CYCLE 1 BR THERAPY)
     Route: 042
  2. BENDAMUSTINE HYDROCHLORIDE [Suspect]
     Active Substance: BENDAMUSTINE HYDROCHLORIDE
     Dosage: UNK, (CYCLE 2 BR THERAPY)
     Route: 042
  3. BENDAMUSTINE HYDROCHLORIDE [Suspect]
     Active Substance: BENDAMUSTINE HYDROCHLORIDE
     Dosage: UNK, (CYCLE 3 BR THERAPY)
     Route: 042
  4. BENDAMUSTINE HYDROCHLORIDE [Suspect]
     Active Substance: BENDAMUSTINE HYDROCHLORIDE
     Dosage: UNK, (CYCLE 4 BR THERAPY)
     Route: 042
  5. RITUXAN [Concomitant]
     Active Substance: RITUXIMAB
     Indication: Follicular lymphoma
     Dosage: UNK, (CYCLE 1 BR THERAPY)
     Route: 042
  6. RITUXAN [Concomitant]
     Active Substance: RITUXIMAB
     Dosage: UNK, (CYCLE 2 BR THERAPY)
     Route: 042
  7. RITUXAN [Concomitant]
     Active Substance: RITUXIMAB
     Dosage: UNK, (CYCLE 3 BR THERAPY)
     Route: 042
  8. RITUXAN [Concomitant]
     Active Substance: RITUXIMAB
     Dosage: UNK, (CYCLE 4 BR THERAPY)
     Route: 042
  9. FLUDARABINE [Concomitant]
     Active Substance: FLUDARABINE PHOSPHATE
     Indication: Follicular lymphoma
     Dosage: UNK, (CYCLE 1)
     Route: 065
  10. FLUDARABINE [Concomitant]
     Active Substance: FLUDARABINE PHOSPHATE
     Dosage: UNK, (CYCLE 2)
     Route: 065

REACTIONS (3)
  - Hypogammaglobulinaemia [Unknown]
  - COVID-19 [Recovered/Resolved]
  - CD4 lymphocytes decreased [Unknown]
